FAERS Safety Report 13238037 (Version 1)
Quarter: 2017Q1

REPORT INFORMATION
  Report Type: Spontaneous
  Country: US (occurrence: US)
  Receive Date: 20170215
  Receipt Date: 20170215
  Transmission Date: 20170428
  Serious: Yes (Disabling)
  Sender: FDA-Public Use
  Company Number: None

PATIENT
  Age: 56 Year
  Sex: Female
  Weight: 47.25 kg

DRUGS (4)
  1. IC IMIQUIMOD 5% CRAM PACKET [Suspect]
     Active Substance: IMIQUIMOD
     Indication: ACTINIC KERATOSIS
     Dosage: ?          OTHER STRENGTH:PERCENT;QUANTITY:1 PACKET;?
     Route: 061
     Dates: start: 20160301, end: 20160603
  2. TYLENOL [Concomitant]
     Active Substance: ACETAMINOPHEN
  3. CHEWABLE VITAMIN [Concomitant]
  4. FOURICET [Concomitant]

REACTIONS (1)
  - Visual field defect [None]

NARRATIVE: CASE EVENT DATE: 20160618
